FAERS Safety Report 18771569 (Version 1)
Quarter: 2021Q1

REPORT INFORMATION
  Report Type: Spontaneous
  Country: US (occurrence: US)
  Receive Date: 20210122
  Receipt Date: 20210122
  Transmission Date: 20210419
  Serious: No
  Sender: FDA-Public Use
  Company Number: US-PCCINC-2020-PEL-000054

PATIENT

DRUGS (4)
  1. GABLOFEN [Suspect]
     Active Substance: BACLOFEN
     Indication: CEREBRAL PALSY
     Dosage: 861.2 MICROGRAM PER DAY
     Route: 037
  2. GABLOFEN [Suspect]
     Active Substance: BACLOFEN
     Dosage: 20 MILLILITER OF 2000MCG/ML
     Route: 037
     Dates: start: 20200127
  3. GABLOFEN [Suspect]
     Active Substance: BACLOFEN
     Dosage: DOSE WAS DECREASED BY 10%
     Route: 037
     Dates: start: 20200128
  4. GABLOFEN [Suspect]
     Active Substance: BACLOFEN
     Dosage: DOSE WAS DECREASED BY 10%
     Route: 037
     Dates: start: 20200130

REACTIONS (5)
  - Vomiting [Unknown]
  - Device infusion issue [Unknown]
  - Withdrawal syndrome [Unknown]
  - Diarrhoea [Unknown]
  - Somnolence [Unknown]

NARRATIVE: CASE EVENT DATE: 20191223
